FAERS Safety Report 10927518 (Version 1)
Quarter: 2015Q1

REPORT INFORMATION
  Report Type: Spontaneous
  Country: IT (occurrence: FR)
  Receive Date: 20150318
  Receipt Date: 20150318
  Transmission Date: 20150721
  Serious: Yes (Hospitalization)
  Sender: FDA-Public Use
  Company Number: FR-FRI-1000075318

PATIENT
  Age: 102 Year
  Sex: Female

DRUGS (7)
  1. INEXIUM [Concomitant]
     Active Substance: ESOMEPRAZOLE
     Dosage: 1 TABLET DAILY
  2. CACIT VITAMINE D3 [Concomitant]
     Active Substance: CALCIUM CARBONATE\CHOLECALCIFEROL
     Dosage: 1 TABLET DAILY
  3. FOSFOMYCIN [Suspect]
     Active Substance: FOSFOMYCIN
     Indication: URINARY TRACT INFECTION
     Dosage: 3 G, SINGLE
     Route: 048
     Dates: start: 20150116, end: 20150116
  4. KARDEGIC [Concomitant]
     Active Substance: ASPIRIN LYSINE
     Dosage: 1 SACHET DAILY
  5. LEVOTHYROX [Concomitant]
     Active Substance: LEVOTHYROXINE
     Dosage: 1 DF DOSAGE FORM
  6. LASILIX [Concomitant]
     Active Substance: FUROSEMIDE
     Dosage: 1 DF DOSAGE FORM
  7. VITAMIN D3 [Concomitant]
     Active Substance: CHOLECALCIFEROL
     Dosage: 1 TABLET DAILY

REACTIONS (4)
  - Confusional state [Recovered/Resolved]
  - Diarrhoea [Recovered/Resolved]
  - Pseudomembranous colitis [Recovered/Resolved]
  - Dehydration [Recovered/Resolved]

NARRATIVE: CASE EVENT DATE: 20150205
